FAERS Safety Report 9513632 (Version 3)
Quarter: 2013Q4

REPORT INFORMATION
  Report Type: Spontaneous
  Country: GB (occurrence: GB)
  Receive Date: 20130910
  Receipt Date: 20131202
  Transmission Date: 20140711
  Serious: Yes (Hospitalization)
  Sender: FDA-Public Use
  Company Number: GB-GLAXOSMITHKLINE-B0919909A

PATIENT
  Age: 66 Year
  Sex: Female

DRUGS (5)
  1. LAMOTRIGINE [Suspect]
     Indication: EPILEPSY
     Dosage: 400MG PER DAY
     Route: 048
     Dates: end: 201307
  2. LANSOPRAZOLE [Suspect]
     Dates: end: 20130724
  3. ASPIRIN [Concomitant]
  4. LACTULOSE [Concomitant]
  5. PARACETAMOL [Concomitant]

REACTIONS (1)
  - Hyponatraemia [Recovered/Resolved]
